FAERS Safety Report 20985291 (Version 1)
Quarter: 2022Q2

REPORT INFORMATION
  Report Type: Spontaneous
  Country: US (occurrence: US)
  Receive Date: 20220621
  Receipt Date: 20220621
  Transmission Date: 20220721
  Serious: No
  Sender: FDA-Public Use
  Company Number: US-UNITED THERAPEUTICS-UNT-2022-013191

PATIENT
  Age: 48 Year
  Sex: Female

DRUGS (3)
  1. REMODULIN [Suspect]
     Active Substance: TREPROSTINIL
     Indication: Pulmonary arterial hypertension
     Dosage: UNK, CONTINUING
     Route: 058
     Dates: start: 20200218
  2. REMODULIN [Suspect]
     Active Substance: TREPROSTINIL
     Dosage: 0.0709 ?G/KG, CONTINUING
     Route: 058
  3. ADEMPAS [Suspect]
     Active Substance: RIOCIGUAT
     Indication: Product used for unknown indication
     Dosage: 1.5 MG
     Route: 048

REACTIONS (2)
  - Infusion site infection [Unknown]
  - Rash [Unknown]

NARRATIVE: CASE EVENT DATE: 20220501
